FAERS Safety Report 8541696-2 (Version None)
Quarter: 2012Q3

REPORT INFORMATION
  Report Type: 
  Country: None (occurrence: None)
  Receive Date: 20120726
  Receipt Date: 20120719
  Transmission Date: 20120928
  Serious: Yes (Death, Other)
  Sender: FDA-Public Use
  Company Number: PHHY2012DE061832

PATIENT
  Age: 58 Year
  Sex: Female

DRUGS (5)
  1. MYCOPHENOLATE MOFETIL [Concomitant]
     Indication: RENAL TRANSPLANT
  2. EVEROLIMUS [Suspect]
     Indication: RENAL TRANSPLANT
  3. EPOGEN [Concomitant]
  4. FUROSEMIDE [Concomitant]
  5. PREDNISOLONE [Concomitant]
     Indication: RENAL TRANSPLANT

REACTIONS (4)
  - RENAL FAILURE [None]
  - PLEURAL EFFUSION [None]
  - CARDIAC FAILURE [None]
  - BREAST OEDEMA [None]
